FAERS Safety Report 7799435-9 (Version None)
Quarter: 2011Q4

REPORT INFORMATION
  Report Type: 
  Country: None (occurrence: None)
  Receive Date: 20111004
  Receipt Date: 20110922
  Transmission Date: 20120403
  Serious: Yes (Hospitalization)
  Sender: FDA-Public Use
  Company Number: 1052276

PATIENT
  Age: 18 Year
  Sex: Male
  Weight: 73 kg

DRUGS (3)
  1. FENTANYL CITRATE [Suspect]
     Indication: PRODUCT USED FOR UNKNOWN INDICATION
     Dosage: INTRAVENOUS (NOT OTHERWISE SPECIFIED),(^SAME DAY^)
     Route: 042
  2. ROCURONIUM BROMIDE [Suspect]
     Indication: PRODUCT USED FOR UNKNOWN INDICATION
     Dosage: INTRAVENOUS (NOT OTHERWISE SPECIFIED) (SAME DAY)
     Route: 042
  3. DIPRIVAN [Suspect]
     Dosage: NTRAVENOUS (NOT OTHERWISE SPECIFIED), SAME DAY
     Route: 042

REACTIONS (1)
  - ANAPHYLACTIC SHOCK [None]
